FAERS Safety Report 25951779 (Version 1)
Quarter: 2025Q4

REPORT INFORMATION
  Report Type: Report from Study
  Country: EU (occurrence: EU)
  Receive Date: 20251023
  Receipt Date: 20251023
  Transmission Date: 20260118
  Serious: Yes (Hospitalization)
  Sender: EMD SERONO INC
  Company Number: EU-Merck Healthcare KGaA-2025053388

PATIENT
  Age: 4 Year
  Sex: Male
  Weight: 11 kg

DRUGS (1)
  1. SAIZEN [Suspect]
     Active Substance: SOMATROPIN
     Indication: Chronic kidney disease
     Dates: start: 20250510

REACTIONS (2)
  - Upper limb fracture [Recovering/Resolving]
  - Fracture displacement [Recovering/Resolving]

NARRATIVE: CASE EVENT DATE: 20251016
